FAERS Safety Report 16570728 (Version 1)
Quarter: 2019Q3

REPORT INFORMATION
  Report Type: Spontaneous
  Country: DK (occurrence: DK)
  Receive Date: 20190715
  Receipt Date: 20190715
  Transmission Date: 20191004
  Serious: Yes (Life-Threatening, Hospitalization)
  Sender: FDA-Public Use
  Company Number: DK-TEVA-2019-DK-1076511

PATIENT
  Age: 49 Year
  Sex: Female

DRUGS (2)
  1. PREDNISOLONE. [Concomitant]
     Active Substance: PREDNISOLONE
     Indication: IMMUNOSUPPRESSION
     Dosage: 7.5 MILLIGRAM DAILY; STRENGTH: 5 MG
     Route: 048
     Dates: start: 20190314
  2. CIQORIN [Suspect]
     Active Substance: CYCLOSPORINE
     Indication: IMMUNOSUPPRESSION
     Dosage: 150 MILLIGRAM DAILY; STRENGTH: 25 MG
     Route: 048
     Dates: start: 20190121, end: 20190618

REACTIONS (3)
  - Confusional state [Recovering/Resolving]
  - Seizure [Recovering/Resolving]
  - Encephalopathy [Recovered/Resolved]

NARRATIVE: CASE EVENT DATE: 201903
